FAERS Safety Report 23946857 (Version 1)
Quarter: 2024Q2

REPORT INFORMATION
  Report Type: Spontaneous
  Country: US (occurrence: None)
  Receive Date: 20240606
  Receipt Date: 20240606
  Transmission Date: 20240715
  Serious: Yes (Hospitalization)
  Sender: FDA-Public Use
  Company Number: None

PATIENT
  Sex: Male

DRUGS (1)
  1. POMALYST [Suspect]
     Active Substance: POMALIDOMIDE
     Indication: Plasma cell myeloma
     Dosage: FREQ: TAKE 1 CAPSULE BY MOUTH DAILY ON DAYS 1-21 FOLLOWED BY A 7 DAY BREAK. DO NOT BREAK, CHEW, OR O
     Route: 048
     Dates: start: 20240403

REACTIONS (2)
  - Hospitalisation [None]
  - Therapy cessation [None]
